FAERS Safety Report 5951599-5 (Version None)
Quarter: 2008Q4

REPORT INFORMATION
  Report Type: 
  Country: None (occurrence: None)
  Receive Date: 20081113
  Receipt Date: 20081106
  Transmission Date: 20090506
  Serious: Yes (Other)
  Sender: FDA-Public Use
  Company Number: PHHY2008NO27306

PATIENT
  Sex: Female

DRUGS (3)
  1. RITALIN [Suspect]
     Indication: ATTENTION DEFICIT/HYPERACTIVITY DISORDER
     Route: 048
  2. RITALIN [Suspect]
     Dosage: 40 MGX2 IN THE MORNING
  3. RITALIN [Suspect]
     Dosage: 40 MG IN THE MORNING AND 40 MG AT NOON

REACTIONS (5)
  - CHILLS [None]
  - DRUG EFFECT DECREASED [None]
  - NAUSEA [None]
  - SOMNOLENCE [None]
  - VOMITING [None]
